FAERS Safety Report 18028369 (Version 1)
Quarter: 2020Q3

REPORT INFORMATION
  Report Type: Spontaneous
  Country: BR (occurrence: BR)
  Receive Date: 20200716
  Receipt Date: 20200716
  Transmission Date: 20201103
  Serious: Yes (Other)
  Sender: FDA-Public Use
  Company Number: BR-TAKEDA-2020TUS030216

PATIENT
  Age: 64 Year
  Sex: Female

DRUGS (1)
  1. ENTYVIO [Suspect]
     Active Substance: VEDOLIZUMAB
     Indication: PRODUCT USED FOR UNKNOWN INDICATION
     Dosage: UNK
     Route: 042
     Dates: start: 201607

REACTIONS (6)
  - COVID-19 [Recovered/Resolved]
  - Vitamin B12 abnormal [Unknown]
  - Inflammation [Unknown]
  - Off label use [Unknown]
  - Vitamin D abnormal [Unknown]
  - Ileal ulcer [Unknown]

NARRATIVE: CASE EVENT DATE: 2018
